FAERS Safety Report 26126255 (Version 1)
Quarter: 2025Q4

REPORT INFORMATION
  Report Type: Spontaneous
  Country: RU (occurrence: RU)
  Receive Date: 20251205
  Receipt Date: 20251205
  Transmission Date: 20260117
  Serious: Yes (Other)
  Sender: RANBAXY
  Company Number: RU-SUN PHARMACEUTICAL INDUSTRIES LTD-2025R1-504895

PATIENT
  Age: 9 Year
  Sex: Male

DRUGS (4)
  1. CEFTRIAXONE [Suspect]
     Active Substance: CEFTRIAXONE
     Indication: Scarlet fever
     Dosage: 1.0 V/V SOLUTION DRIP SLOWLY 2 TIMES A DAY
     Route: 042
  2. SODIUM CHLORIDE [Suspect]
     Active Substance: SODIUM CHLORIDE
     Indication: Scarlet fever
     Dosage: UNK ( 500 ML)
     Route: 042
  3. CHLOROPYRAMINE [Suspect]
     Active Substance: CHLOROPYRAMINE
     Indication: Scarlet fever
     Dosage: UNK, TID (HALF TABLET)
     Route: 065
  4. NITROFURAZONE [Suspect]
     Active Substance: NITROFURAZONE
     Indication: Scarlet fever
     Dosage: UNK ( 4 TIMES A DAY)
     Route: 065

REACTIONS (1)
  - Condition aggravated [Unknown]
